FAERS Safety Report 14866638 (Version 1)
Quarter: 2018Q2

REPORT INFORMATION
  Report Type: Report from Study
  Country: US (occurrence: US)
  Receive Date: 20180508
  Receipt Date: 20180508
  Transmission Date: 20180711
  Serious: Yes (Life-Threatening, Hospitalization)
  Sender: FDA-Public Use
  Company Number: US-ALKERMES INC.-ALK-2018-000738

PATIENT
  Age: 49 Year
  Sex: Male
  Weight: 84.2 kg

DRUGS (5)
  1. NARCAN [Suspect]
     Active Substance: NALOXONE HYDROCHLORIDE
     Dosage: 2 MG, ONE TIME DOSE
     Route: 045
     Dates: start: 20180127, end: 20180127
  2. NALTREXONE [Suspect]
     Active Substance: NALTREXONE
     Indication: DRUG REHABILITATION
     Dosage: UNK, ONE TIME DOSE
     Route: 048
     Dates: start: 20180127, end: 20180127
  3. VIVITROL [Suspect]
     Active Substance: NALTREXONE
     Indication: DRUG DEPENDENCE
     Dosage: 380 MG, QMO
     Route: 030
     Dates: start: 20171114
  4. NARCAN [Suspect]
     Active Substance: NALOXONE HYDROCHLORIDE
     Indication: OVERDOSE
     Dosage: UNK UNK, ONE TIME DOSE
     Dates: start: 20180126, end: 20180126
  5. VIVITROL [Suspect]
     Active Substance: NALTREXONE
     Dosage: 380 MG, QMO
     Route: 030
     Dates: start: 20171211

REACTIONS (13)
  - Unresponsive to stimuli [Recovered/Resolved]
  - Substance abuse [Unknown]
  - Withdrawal syndrome [Recovered/Resolved]
  - Pulmonary oedema [Unknown]
  - Sepsis [Unknown]
  - Depressed mood [Unknown]
  - Drug dependence [Unknown]
  - Overdose [Recovered/Resolved]
  - Feeling abnormal [Not Recovered/Not Resolved]
  - Pneumonia aspiration [Unknown]
  - Respiratory failure [Unknown]
  - Hepatitis [Not Recovered/Not Resolved]
  - Mental disorder [Unknown]

NARRATIVE: CASE EVENT DATE: 20180127
